FAERS Safety Report 5325172-6 (Version None)
Quarter: 2007Q2

REPORT INFORMATION
  Report Type: 
  Country: None (occurrence: None)
  Receive Date: 20070515
  Receipt Date: 20070511
  Transmission Date: 20071010
  Serious: Yes (Other)
  Sender: FDA-Public Use
  Company Number: A0651093A

PATIENT
  Age: 30 Year
  Sex: Female

DRUGS (3)
  1. LAMOTRIGINE [Suspect]
     Indication: BIPOLAR DISORDER
     Dates: start: 20060515
  2. ZYPREXA [Concomitant]
  3. AMBIEN [Concomitant]

REACTIONS (1)
  - ABORTION SPONTANEOUS [None]
